FAERS Safety Report 15903639 (Version 1)
Quarter: 2019Q1

REPORT INFORMATION
  Report Type: Report from Study
  Country: PL (occurrence: PL)
  Receive Date: 20190203
  Receipt Date: 20190203
  Transmission Date: 20190417
  Serious: Yes (Other)
  Sender: FDA-Public Use
  Company Number: PL-ACCORD-104945

PATIENT

DRUGS (2)
  1. ESCITALOPRAM [Suspect]
     Active Substance: ESCITALOPRAM OXALATE
     Indication: ANTIDEPRESSANT THERAPY
  2. GINKGO BILOBA/GINKGO BILOBA EXTRACT/GINKGO BILOBA LEAF EXTRACT [Interacting]
     Active Substance: GINKGO BILOBA LEAF EXTRACT
     Indication: NUTRITIONAL SUPPLEMENTATION

REACTIONS (2)
  - Drug interaction [Unknown]
  - Haemorrhage [Unknown]
